FAERS Safety Report 7303304-8 (Version None)
Quarter: 2011Q1

REPORT INFORMATION
  Report Type: 
  Country: None (occurrence: None)
  Receive Date: 20110221
  Receipt Date: 20110216
  Transmission Date: 20110831
  Serious: Yes (Death)
  Sender: FDA-Public Use
  Company Number: US-ASTELLAS-2011US000118

PATIENT

DRUGS (18)
  1. AMBISOME [Suspect]
     Indication: CRYPTOCOCCOSIS
     Dosage: 200 MG, UID/QD
     Route: 042
     Dates: start: 20101218, end: 20101225
  2. PROMETHAZINE [Concomitant]
     Indication: NAUSEA
     Dosage: 25 MG, UNKNOWN/D
     Route: 065
     Dates: start: 20101217, end: 20101225
  3. VERSED [Concomitant]
     Indication: SEDATION
     Dosage: 100 MG, UNKNOWN/D
     Route: 065
     Dates: start: 20101218, end: 20101225
  4. CIPROFLOXACIN [Concomitant]
     Indication: PRODUCT USED FOR UNKNOWN INDICATION
     Dosage: 400 MG, UNKNOWN/D
     Route: 065
     Dates: start: 20101222, end: 20101225
  5. VANCOMYCIN [Concomitant]
     Indication: PRODUCT USED FOR UNKNOWN INDICATION
     Dosage: 1 MG, UID/QD
     Route: 048
     Dates: start: 20101224, end: 20101225
  6. RITONAVIR [Concomitant]
     Indication: HIV INFECTION
     Dosage: 100 MG, UNKNOWN/D
     Route: 065
     Dates: start: 20101219, end: 20101225
  7. EMTRICITABINE W/TENOFOVIR [Concomitant]
     Indication: HIV INFECTION
     Dosage: 300 MG, UID/QD
     Route: 048
     Dates: start: 20101219, end: 20101221
  8. AZITHROMYCIN [Concomitant]
     Indication: PRODUCT USED FOR UNKNOWN INDICATION
     Dosage: UNK
     Route: 065
     Dates: start: 20101217, end: 20101218
  9. INSULIN [Concomitant]
     Indication: DIABETES MELLITUS
     Dosage: 100 U, UNKNOWN/D
     Route: 065
     Dates: start: 20101224, end: 20101225
  10. LASIX [Concomitant]
     Indication: FLUID RETENTION
     Dosage: 100 MG, UNKNOWN/D
     Route: 065
     Dates: start: 20101224, end: 20101225
  11. DARUNAVIR ETHANOLATE [Concomitant]
     Indication: HIV INFECTION
     Dosage: 800 MG, UNKNOWN/D
     Route: 065
     Dates: start: 20101219, end: 20101221
  12. ZOFRAN [Concomitant]
     Indication: NAUSEA
     Dosage: 4 MG, UNKNOWN/D
     Route: 065
     Dates: start: 20101217, end: 20101225
  13. SOLU-MEDROL [Concomitant]
     Indication: PRODUCT USED FOR UNKNOWN INDICATION
     Dosage: 40 MG, UNKNOWN/D
     Route: 065
     Dates: start: 20101218, end: 20101225
  14. PENTAMIDINE ISETHIONATE [Concomitant]
     Indication: PRODUCT USED FOR UNKNOWN INDICATION
     Dosage: 240 MG, UNKNOWN/D
     Route: 065
     Dates: start: 20101221, end: 20101225
  15. FENTANYL [Concomitant]
     Indication: SEDATION
     Dosage: 2500 UG, UNKNOWN/D
     Route: 065
     Dates: start: 20101218, end: 20101225
  16. ALBUTEROL [Concomitant]
     Indication: ASTHMA
     Dosage: UNK
     Route: 065
     Dates: start: 20101218, end: 20101220
  17. MOXIFLOXACIN [Concomitant]
     Indication: PRODUCT USED FOR UNKNOWN INDICATION
     Dosage: 400 MG, UNKNOWN/D
     Route: 065
     Dates: start: 20101217, end: 20101217
  18. GANCICLOVIR [Concomitant]
     Indication: PRODUCT USED FOR UNKNOWN INDICATION
     Dosage: 300 MG, UNKNOWN/D
     Route: 065
     Dates: start: 20101221, end: 20101225

REACTIONS (1)
  - DEATH [None]
